FAERS Safety Report 9054195 (Version 1)
Quarter: 2013Q1

REPORT INFORMATION
  Report Type: Spontaneous
  Country: US (occurrence: US)
  Receive Date: 20130208
  Receipt Date: 20130208
  Transmission Date: 20140127
  Serious: Yes (Hospitalization)
  Sender: FDA-Public Use
  Company Number: US-TEVA-385144USA

PATIENT
  Age: 32 Year
  Sex: Female

DRUGS (3)
  1. LAMIVUDINE AND ZIDOVUDINE [Suspect]
     Indication: HIV INFECTION
  2. ATAZANAVIR [Suspect]
     Indication: HIV INFECTION
  3. RITONAVIR [Suspect]
     Indication: HIV INFECTION

REACTIONS (1)
  - Epidural lipomatosis [Recovering/Resolving]
